FAERS Safety Report 21076092 (Version 1)
Quarter: 2022Q3

REPORT INFORMATION
  Report Type: Spontaneous
  Country: ES (occurrence: ES)
  Receive Date: 20220713
  Receipt Date: 20220713
  Transmission Date: 20221027
  Serious: Yes (Hospitalization)
  Sender: FDA-Public Use
  Company Number: None

PATIENT
  Age: 79 Year
  Sex: Male

DRUGS (6)
  1. PREGABALIN [Suspect]
     Active Substance: PREGABALIN
     Indication: Pain
     Dosage: 75 MG, 1X/DAY
     Route: 048
     Dates: start: 20220509, end: 20220519
  2. CITALOPRAM [Suspect]
     Active Substance: CITALOPRAM HYDROBROMIDE
     Indication: Depression
     Dosage: 20 MG, 1X/DAY
     Route: 048
     Dates: start: 20220225
  3. FUROSEMIDE [Suspect]
     Active Substance: FUROSEMIDE
     Indication: Transfusion reaction
     Dosage: 10 MG, AS NEEDED
     Route: 042
     Dates: start: 20220507, end: 20220507
  4. GLICLAZIDE [Concomitant]
     Active Substance: GLICLAZIDE
     Indication: Diabetes mellitus
     Dosage: 30 MG, 1X/DAY
     Route: 048
     Dates: start: 20200207
  5. PREGABALIN [Concomitant]
     Active Substance: PREGABALIN
     Indication: Pain
     Dosage: 25 MG, 3X/DAY (EVERY 8 HOURS)
     Route: 048
     Dates: start: 20220507, end: 20220509
  6. ENALAPRIL MALEATE [Concomitant]
     Active Substance: ENALAPRIL MALEATE
     Indication: Hypertension
     Dosage: 5 MG, 1X/DAY
     Route: 048
     Dates: start: 201207

REACTIONS (1)
  - Hyponatraemia [Recovered/Resolved]

NARRATIVE: CASE EVENT DATE: 20220511
